FAERS Safety Report 7872634-3 (Version None)
Quarter: 2011Q4

REPORT INFORMATION
  Report Type: 
  Country: None (occurrence: None)
  Receive Date: 20111030
  Receipt Date: 20110502
  Transmission Date: 20120403
  Serious: No
  Sender: FDA-Public Use
  Company Number: US-AMGEN-USASP2011022591

PATIENT
  Sex: Female

DRUGS (2)
  1. CELEBREX [Concomitant]
  2. ENBREL [Suspect]
     Indication: RHEUMATOID ARTHRITIS
     Dosage: 50 MG, QWK
     Dates: start: 20101001, end: 20110101

REACTIONS (2)
  - DEPRESSION [None]
  - RHEUMATOID ARTHRITIS [None]
